FAERS Safety Report 9709807 (Version 2)
Quarter: 2014Q1

REPORT INFORMATION
  Report Type: Spontaneous
  Country: US (occurrence: US)
  Receive Date: 20131126
  Receipt Date: 20140227
  Transmission Date: 20141002
  Serious: No
  Sender: FDA-Public Use
  Company Number: US-PFIZER INC-2013333774

PATIENT
  Sex: Female

DRUGS (1)
  1. GLIPIZIDE [Suspect]
     Indication: DIABETES MELLITUS
     Dosage: UNK

REACTIONS (6)
  - Micturition disorder [Unknown]
  - Weight decreased [Unknown]
  - Malaise [Unknown]
  - Cyst [Unknown]
  - Bladder disorder [Unknown]
  - Impaired insulin secretion [Unknown]
